FAERS Safety Report 14524491 (Version 4)
Quarter: 2018Q2

REPORT INFORMATION
  Report Type: Spontaneous
  Country: IT (occurrence: IT)
  Receive Date: 20180213
  Receipt Date: 20180509
  Transmission Date: 20180711
  Serious: Yes (Hospitalization)
  Sender: FDA-Public Use
  Company Number: IT-ROCHE-2067879

PATIENT
  Age: 87 Year
  Sex: Female

DRUGS (10)
  1. GABAPENTIN. [Concomitant]
     Active Substance: GABAPENTIN
     Route: 065
  2. PLAQUENIL [Concomitant]
     Active Substance: HYDROXYCHLOROQUINE SULFATE
  3. EUTIROX [Concomitant]
     Active Substance: LEVOTHYROXINE SODIUM
  4. DIBASE [Concomitant]
     Active Substance: CHOLECALCIFEROL
  5. MIRTAZAPINE. [Concomitant]
     Active Substance: MIRTAZAPINE
  6. TRITTICO [Concomitant]
     Active Substance: TRAZODONE HYDROCHLORIDE
     Dosage: UNIT DOSE: 20 [DRP]
     Route: 065
  7. RIVOTRIL [Suspect]
     Active Substance: CLONAZEPAM
     Indication: EPILEPSY
     Dosage: UNIT DOSE: 10 [DRP]
     Route: 048
  8. LASIX [Concomitant]
     Active Substance: FUROSEMIDE
  9. OLANZAPINE. [Concomitant]
     Active Substance: OLANZAPINE
     Route: 065
  10. DULOXETINE HYDROCHLORIDE. [Concomitant]
     Active Substance: DULOXETINE HYDROCHLORIDE
     Route: 065

REACTIONS (2)
  - Sopor [Recovered/Resolved]
  - Unresponsive to stimuli [Recovered/Resolved]

NARRATIVE: CASE EVENT DATE: 20170709
